FAERS Safety Report 9281587 (Version 2)
Quarter: 2013Q3

REPORT INFORMATION
  Report Type: Spontaneous
  Country: LB (occurrence: LB)
  Receive Date: 20130509
  Receipt Date: 20130802
  Transmission Date: 20140515
  Serious: Yes (Death, Life-Threatening, Hospitalization)
  Sender: FDA-Public Use
  Company Number: LB-CELGENEUS-093-21880-13043466

PATIENT
  Age: 67 Year
  Sex: Female

DRUGS (3)
  1. REVLIMID [Suspect]
     Indication: PLASMA CELL MYELOMA
     Dosage: 10 MILLIGRAM
     Route: 048
     Dates: start: 20120126, end: 201301
  2. VELCADE [Concomitant]
     Indication: PLASMA CELL MYELOMA
     Route: 065
  3. DEXAMETHASONE [Concomitant]
     Indication: PLASMA CELL MYELOMA
     Route: 065

REACTIONS (3)
  - Myocardial infarction [Fatal]
  - Arrhythmia [Fatal]
  - Renal failure [Not Recovered/Not Resolved]
